FAERS Safety Report 8297868-8 (Version None)
Quarter: 2012Q2

REPORT INFORMATION
  Report Type: 
  Country: None (occurrence: None)
  Receive Date: 20120419
  Receipt Date: 20120417
  Transmission Date: 20120825
  Serious: Yes (Life-Threatening, Hospitalization, Other)
  Sender: FDA-Public Use
  Company Number: PHHY2011AU109243

PATIENT
  Sex: Female

DRUGS (8)
  1. ACETAMINOPHEN [Concomitant]
  2. RAMIPRIL [Concomitant]
     Indication: HYPERTENSION
     Dosage: 2.5 MG, DAILY
     Dates: start: 20110530
  3. IRBESARTAN [Concomitant]
     Dosage: 300 MG, UNK
     Dates: start: 20110801
  4. CHOLECALCIFEROL [Concomitant]
  5. GILENYA [Suspect]
     Indication: MULTIPLE SCLEROSIS
     Dosage: 0.5 MG, DAILY
     Route: 048
     Dates: start: 20110502
  6. RAMIPRIL [Concomitant]
     Dosage: 5 MG, DAILY
  7. IRBESARTAN + HYDROCHLOROTHIAZIDE [Concomitant]
     Dosage: UNK
     Dates: start: 20111101
  8. PANTOPRAZOLE [Concomitant]

REACTIONS (17)
  - BLOOD PRESSURE DECREASED [None]
  - ECZEMA EYELIDS [None]
  - DYSPNOEA [None]
  - INFLUENZA [None]
  - CONVULSION [None]
  - HEADACHE [None]
  - MALAISE [None]
  - CONJUNCTIVITIS [None]
  - HAEMORRHAGE [None]
  - CONTUSION [None]
  - BLOOD PRESSURE INCREASED [None]
  - BACK PAIN [None]
  - SUBDURAL HAEMATOMA [None]
  - GINGIVAL INFECTION [None]
  - GINGIVITIS [None]
  - FALL [None]
  - DIZZINESS [None]
